FAERS Safety Report 11681873 (Version 1)
Quarter: 2015Q4

REPORT INFORMATION
  Report Type: Spontaneous
  Country: US (occurrence: None)
  Receive Date: 20151028
  Receipt Date: 20151028
  Transmission Date: 20160304
  Serious: Yes (Disabling)
  Sender: FDA-Public Use
  Company Number: None

PATIENT
  Age: 48 Year
  Sex: Female
  Weight: 61.24 kg

DRUGS (2)
  1. KENALOG [Suspect]
     Active Substance: TRIAMCINOLONE ACETONIDE
     Indication: POST PROCEDURAL COMPLICATION
     Dosage: ONE TIME INJECTION ?INJECTED INTO LEFT KNEE
     Dates: start: 20120523
  2. KENALOG [Suspect]
     Active Substance: TRIAMCINOLONE ACETONIDE
     Indication: JOINT SWELLING
     Dosage: ONE TIME INJECTION ?INJECTED INTO LEFT KNEE
     Dates: start: 20120523

REACTIONS (3)
  - Atrophy [None]
  - Malaise [None]
  - Post procedural complication [None]

NARRATIVE: CASE EVENT DATE: 20120523
